FAERS Safety Report 11934615 (Version 1)
Quarter: 2016Q1

REPORT INFORMATION
  Report Type: Spontaneous
  Country: US (occurrence: None)
  Receive Date: 20160120
  Receipt Date: 20160120
  Transmission Date: 20160526
  Serious: Yes (Life-Threatening, Hospitalization, Disabling)
  Sender: FDA-Public Use
  Company Number: None

PATIENT
  Age: 46 Year
  Sex: Male
  Weight: 86.18 kg

DRUGS (7)
  1. SEROQUEL [Concomitant]
     Active Substance: QUETIAPINE FUMARATE
  2. FLUTICASONE POPIONATE [Concomitant]
  3. ZOLOFT [Concomitant]
     Active Substance: SERTRALINE HYDROCHLORIDE
  4. ONE-A-DAY ACTIVE [Concomitant]
  5. OMEPRAZOLE. [Concomitant]
     Active Substance: OMEPRAZOLE
  6. TESTOSTERONE 87.5 MG PELLET US COMPOUNDING PHARMACY [Suspect]
     Active Substance: TESTOSTERONE
     Indication: BLOOD TESTOSTERONE DECREASED
     Dosage: 10 PELLETS -- GIVEN INTO/UNDER THE SKIN
     Dates: start: 20151012, end: 20160104
  7. KLONOPIN [Concomitant]
     Active Substance: CLONAZEPAM

REACTIONS (20)
  - Mania [None]
  - Scratch [None]
  - Diarrhoea [None]
  - Fatigue [None]
  - Mood swings [None]
  - Paranoia [None]
  - Depression [None]
  - Suicidal ideation [None]
  - Depressed mood [None]
  - Weight decreased [None]
  - Nightmare [None]
  - Panic attack [None]
  - Anxiety [None]
  - Decreased appetite [None]
  - Back pain [None]
  - Myalgia [None]
  - Pollakiuria [None]
  - Insomnia [None]
  - Pruritus [None]
  - Headache [None]

NARRATIVE: CASE EVENT DATE: 20151012
